FAERS Safety Report 7078661-0 (Version None)
Quarter: 2010Q4

REPORT INFORMATION
  Report Type: 
  Country: None (occurrence: None)
  Receive Date: 20101101
  Receipt Date: 20101101
  Transmission Date: 20110411
  Serious: Yes (Other)
  Sender: FDA-Public Use
  Company Number: None

PATIENT
  Age: 66 Year
  Sex: Female
  Weight: 43.9989 kg

DRUGS (1)
  1. CARDIZEM CD [Suspect]
     Indication: HEART RATE INCREASED
     Dosage: 240 MG 1 - A DAY
     Dates: start: 20090401, end: 20100301

REACTIONS (1)
  - ALOPECIA [None]
